FAERS Safety Report 5893301-1 (Version None)
Quarter: 2008Q3

REPORT INFORMATION
  Report Type: 
  Country: None (occurrence: None)
  Receive Date: 20080923
  Receipt Date: 20080917
  Transmission Date: 20090109
  Serious: Yes (Hospitalization)
  Sender: FDA-Public Use
  Company Number: B0511812A

PATIENT
  Age: 53 Year
  Sex: Female
  Weight: 87.5 kg

DRUGS (3)
  1. TOPOTECAN [Suspect]
     Dosage: 1.3MG PER DAY
     Route: 042
     Dates: start: 20080213, end: 20080215
  2. CARBOPLATIN [Suspect]
     Dosage: 395MG SINGLE DOSE
     Route: 042
     Dates: start: 20080215, end: 20080215
  3. LEVOTHYROXINE SODIUM [Concomitant]
     Indication: THYROID DISORDER
     Dosage: 50UG PER DAY
     Route: 048
     Dates: start: 20071122

REACTIONS (2)
  - APHASIA [None]
  - CEREBROVASCULAR ACCIDENT [None]
